FAERS Safety Report 7055064-6 (Version None)
Quarter: 2010Q4

REPORT INFORMATION
  Report Type: 
  Country: None (occurrence: None)
  Receive Date: 20101021
  Receipt Date: 20101013
  Transmission Date: 20110411
  Serious: Yes (Other)
  Sender: FDA-Public Use
  Company Number: US-RB-014308-10

PATIENT
  Age: 69 Year
  Sex: Female

DRUGS (1)
  1. DELSYM [Suspect]
     Route: 048
     Dates: start: 20101010

REACTIONS (6)
  - ABDOMINAL MASS [None]
  - DIARRHOEA [None]
  - HEADACHE [None]
  - LETHARGY [None]
  - NAUSEA [None]
  - RECTAL HAEMORRHAGE [None]
